FAERS Safety Report 5215565-X (Version None)
Quarter: 2007Q1

REPORT INFORMATION
  Report Type: 
  Country: None (occurrence: None)
  Receive Date: 20070123
  Receipt Date: 20070112
  Transmission Date: 20070707
  Serious: Yes (Other)
  Sender: FDA-Public Use
  Company Number: PHNR2006AU01019

PATIENT
  Sex: Male

DRUGS (5)
  1. CLOZARIL [Suspect]
     Indication: SCHIZOPHRENIA
     Dosage: 200-600MG DAILY
     Route: 048
     Dates: start: 20051101, end: 20060601
  2. QUETIAPINE FUMARATE [Concomitant]
  3. BENZTROPINE MESYLATE [Concomitant]
  4. ATENOLOL [Concomitant]
  5. THIAMINE [Concomitant]

REACTIONS (9)
  - BLOOD PRESSURE DIASTOLIC INCREASED [None]
  - ECHOCARDIOGRAM ABNORMAL [None]
  - ELECTROCARDIOGRAM ABNORMAL [None]
  - EOSINOPHIL COUNT INCREASED [None]
  - HYPERTENSION [None]
  - MYOCARDIAL ISCHAEMIA [None]
  - SCAN MYOCARDIAL PERFUSION [None]
  - VENTRICULAR DYSFUNCTION [None]
  - VENTRICULAR HYPERTROPHY [None]
